FAERS Safety Report 11545905 (Version 4)
Quarter: 2016Q3

REPORT INFORMATION
  Report Type: Spontaneous
  Country: IT (occurrence: IT)
  Receive Date: 20150924
  Receipt Date: 20160803
  Transmission Date: 20161109
  Serious: Yes (Death, Other)
  Sender: FDA-Public Use
  Company Number: IT-GLAXOSMITHKLINE-IT2015135847

PATIENT
  Age: 69 Year
  Sex: Male

DRUGS (5)
  1. ULTRAVIST [Suspect]
     Active Substance: IOPROMIDE
     Indication: SCAN WITH CONTRAST
     Dosage: 66 ML, UNK
     Route: 042
     Dates: start: 20100503
  2. CETIRIZINE HYDROCHLORIDE. [Suspect]
     Active Substance: CETIRIZINE HYDROCHLORIDE
     Indication: PREMEDICATION
     Dosage: UNKNOWN DOSE, 2X/DAY (BID)
     Dates: start: 2010
  3. ULTRAVIST [Suspect]
     Active Substance: IOPROMIDE
     Indication: PROPHYLAXIS
     Dosage: UNK
  4. CETIRIZINE HYDROCHLORIDE. [Suspect]
     Active Substance: CETIRIZINE HYDROCHLORIDE
     Indication: OFF LABEL USE
     Dosage: UNKNOWN DOSE
  5. RANITIDINE HYDROCHLORIDE. [Suspect]
     Active Substance: RANITIDINE HYDROCHLORIDE
     Indication: PREMEDICATION
     Dosage: 300 MG, 2X/DAY (BID)
     Dates: start: 2010

REACTIONS (10)
  - Abdominal pain [Fatal]
  - Wrong patient received medication [Unknown]
  - Anaphylactic shock [Fatal]
  - Cardiac fibrillation [Fatal]
  - Off label use [Unknown]
  - Cardiac arrest [Fatal]
  - Dyspnoea [Fatal]
  - Loss of consciousness [Fatal]
  - Malaise [Fatal]
  - Drug ineffective for unapproved indication [Unknown]

NARRATIVE: CASE EVENT DATE: 2010
